FAERS Safety Report 8861704 (Version 1)
Quarter: 2012Q4

REPORT INFORMATION
  Report Type: 
  Country: US (occurrence: None)
  Receive Date: 20121025
  Receipt Date: 20121025
  Transmission Date: 20130627
  Serious: Yes (Hospitalization)
  Sender: FDA-Public Use
  Company Number: None

PATIENT
  Sex: Male
  Weight: 72 kg

DRUGS (3)
  1. 5-FLUOROURACIL [Suspect]
     Dates: end: 20121017
  2. LEUCOVORIN CALCIUM [Suspect]
     Dates: end: 20121015
  3. OXALIPLATIN [Suspect]
     Dates: end: 20121015

REACTIONS (2)
  - Chest pain [None]
  - Myocardial infarction [None]
